FAERS Safety Report 24589753 (Version 1)
Quarter: 2024Q4

REPORT INFORMATION
  Report Type: Report from Study
  Country: CN (occurrence: CN)
  Receive Date: 20241107
  Receipt Date: 20241107
  Transmission Date: 20250115
  Serious: Yes (Life-Threatening, Hospitalization)
  Sender: JOHNSON AND JOHNSON
  Company Number: CN-JNJFOC-20241108806

PATIENT
  Age: 68 Year
  Sex: Male
  Weight: 69 kg

DRUGS (4)
  1. ZYTIGA [Suspect]
     Active Substance: ABIRATERONE ACETATE
     Indication: Prostate cancer metastatic
     Route: 048
     Dates: start: 20210811, end: 20210825
  2. PRUXELUTAMIDE [Suspect]
     Active Substance: PRUXELUTAMIDE
     Indication: Prostate cancer metastatic
     Route: 048
     Dates: start: 20210811, end: 20210825
  3. PREDNISONE ACETATE [Suspect]
     Active Substance: PREDNISONE ACETATE
     Indication: Autoimmune disorder
     Route: 048
     Dates: start: 20210811, end: 20210825
  4. TERAZOSIN HYDROCHLORIDE [Concomitant]
     Active Substance: TERAZOSIN HYDROCHLORIDE
     Indication: Hypertension

REACTIONS (1)
  - Immune thrombocytopenia [Recovered/Resolved]
